FAERS Safety Report 22137189 (Version 3)
Quarter: 2025Q4

REPORT INFORMATION
  Report Type: Spontaneous
  Country: EU (occurrence: EU)
  Receive Date: 20230324
  Receipt Date: 20251123
  Transmission Date: 20260117
  Serious: Yes (Other)
  Sender: AUROBINDO
  Company Number: EU-002147023-NVSC2023IT054164

PATIENT
  Age: 64 Year
  Sex: Male

DRUGS (2)
  1. PEMETREXED [Suspect]
     Active Substance: PEMETREXED
     Indication: Pleural mesothelioma malignant
     Dosage: UNK, CYCLIC (SIX CYCLES SINGLE-AGENT AC (Q28) AS THE MAINTENANCE TREATMENT)
     Route: 065
  2. PEMETREXED [Suspect]
     Active Substance: PEMETREXED
     Dosage: UNK, 6 CYCLES
     Route: 065

REACTIONS (5)
  - Erysipelas [Unknown]
  - Infection [Unknown]
  - Cancer fatigue [Recovering/Resolving]
  - Decreased appetite [Unknown]
  - Fatigue [Unknown]
